FAERS Safety Report 8609342 (Version 3)
Quarter: 2014Q4

REPORT INFORMATION
  Report Type: Spontaneous
  Country: IT (occurrence: IT)
  Receive Date: 20120612
  Receipt Date: 20141219
  Transmission Date: 20150529
  Serious: Yes (Disabling, Other)
  Sender: FDA-Public Use
  Company Number: IT-RANBAXY-2012R1-56852

PATIENT
  Age: 43 Year
  Sex: Male

DRUGS (1)
  1. TOPIRAMATE. [Suspect]
     Active Substance: TOPIRAMATE
     Indication: TEMPORAL LOBE EPILEPSY
     Dosage: 150 MG, BID
     Route: 065

REACTIONS (2)
  - Drug-disease interaction [Not Recovered/Not Resolved]
  - Visual impairment [Not Recovered/Not Resolved]
